FAERS Safety Report 7565571-5 (Version None)
Quarter: 2011Q2

REPORT INFORMATION
  Report Type: 
  Country: None (occurrence: None)
  Receive Date: 20110615
  Receipt Date: 20110603
  Transmission Date: 20111010
  Serious: Yes (Other)
  Sender: FDA-Public Use
  Company Number: 2011MA006412

PATIENT

DRUGS (1)
  1. LOSARTAN POTASSIUM [Suspect]
     Dosage: 100 MG;QD;PO
     Route: 048
     Dates: start: 20101213, end: 20110122

REACTIONS (3)
  - WRONG DRUG ADMINISTERED [None]
  - DRUG DISPENSING ERROR [None]
  - BLOOD TEST ABNORMAL [None]
